FAERS Safety Report 7414570-2 (Version None)
Quarter: 2011Q2

REPORT INFORMATION
  Report Type: 
  Country: None (occurrence: None)
  Receive Date: 20110406
  Receipt Date: 20110330
  Transmission Date: 20111010
  Serious: Yes (Other)
  Sender: FDA-Public Use
  Company Number: 20110244

PATIENT
  Age: 58 Year
  Sex: Female

DRUGS (7)
  1. AMITRIPTYLINE [Concomitant]
  2. LEVOTHYROXINE SODIUM [Concomitant]
  3. LIPITOR [Concomitant]
  4. PREDNISONE [Concomitant]
  5. EFFEXOR [Concomitant]
  6. FLUDROCORTISONE [Concomitant]
  7. DEXAMETHASONE SODIUM PHOSPHATE [Suspect]
     Indication: ADDISON'S DISEASE
     Dosage: 1 ML/4MG INTRAMUSCULAR
     Route: 030
     Dates: start: 20110101, end: 20110101

REACTIONS (5)
  - PALPITATIONS [None]
  - MALAISE [None]
  - INJECTION SITE PAIN [None]
  - PRODUCT QUALITY ISSUE [None]
  - AGITATION [None]
